FAERS Safety Report 6136075-1 (Version None)
Quarter: 2009Q1

REPORT INFORMATION
  Report Type: 
  Country: None (occurrence: None)
  Receive Date: 20090330
  Receipt Date: 20090319
  Transmission Date: 20090719
  Serious: Yes (Death)
  Sender: FDA-Public Use
  Company Number: SE-JNJFOC-20090305644

PATIENT
  Age: 47 Year
  Sex: Male

DRUGS (3)
  1. REMICADE [Suspect]
     Indication: ANKYLOSING SPONDYLITIS
     Route: 042
  2. ANTI-ANXIETY DRUG [Concomitant]
     Dosage: AS NEEDED
  3. NSAIDS [Concomitant]
     Dosage: LONG TERM

REACTIONS (1)
  - DEATH [None]
